FAERS Safety Report 20918831 (Version 1)
Quarter: 2022Q2

REPORT INFORMATION
  Report Type: Spontaneous
  Country: US (occurrence: None)
  Receive Date: 20220605
  Receipt Date: 20220605
  Transmission Date: 20220720
  Serious: Yes (Other)
  Sender: FDA-Public Use
  Company Number: None

PATIENT
  Age: 51 Year
  Sex: Female
  Weight: 81.9 kg

DRUGS (5)
  1. PAXLOVID [Suspect]
     Active Substance: NIRMATRELVIR\RITONAVIR
     Indication: COVID-19
     Dosage: OTHER QUANTITY : 3 TABLET(S);?FREQUENCY : TWICE A DAY;?
     Route: 048
     Dates: start: 20220522, end: 20220526
  2. PANTOPRAZOLE [Concomitant]
  3. ALVESCO [Concomitant]
     Active Substance: CICLESONIDE
  4. ALBUTEROL [Concomitant]
  5. UP AND UP WOMEN^S 50+ MULTIMINERAL MULTIVITAMIN [Concomitant]

REACTIONS (6)
  - Rhinorrhoea [None]
  - Cough [None]
  - Chills [None]
  - Headache [None]
  - Rebound effect [None]
  - COVID-19 [None]

NARRATIVE: CASE EVENT DATE: 20220530
